FAERS Safety Report 9112594 (Version 1)
Quarter: 2013Q1

REPORT INFORMATION
  Report Type: Report from Study
  Country: JP (occurrence: JP)
  Receive Date: 20130211
  Receipt Date: 20130211
  Transmission Date: 20140127
  Serious: Yes (Hospitalization, Other)
  Sender: FDA-Public Use
  Company Number: JP-009507513-2012SP020541

PATIENT
  Age: 65 Year
  Sex: Male
  Weight: 76 kg

DRUGS (11)
  1. PEGINTERFERON ALFA-2B [Suspect]
     Indication: CHRONIC HEPATITIS C
     Dosage: 1.1 ?G/KG, QW
     Route: 058
     Dates: start: 20120215, end: 20120307
  2. PEGINTERFERON ALFA-2B [Suspect]
     Dosage: 1.1 ?G/KG, QW
     Route: 058
     Dates: start: 20120411
  3. REBETOL [Suspect]
     Indication: CHRONIC HEPATITIS C
     Dosage: 600 MG, QD
     Route: 048
     Dates: start: 20120215, end: 20120228
  4. REBETOL [Suspect]
     Dosage: 400 MG, QD
     Route: 048
     Dates: start: 20120229, end: 20120314
  5. REBETOL [Suspect]
     Dosage: 600 MG, QD
     Route: 048
     Dates: start: 20120411, end: 20120508
  6. REBETOL [Suspect]
     Dosage: 400 MG, QD
     Route: 048
     Dates: start: 20120509
  7. TELAVIC [Suspect]
     Indication: CHRONIC HEPATITIS C
     Dosage: 1500 MG, QD
     Route: 048
     Dates: start: 20120215, end: 20120314
  8. LOXONIN [Concomitant]
     Indication: PRODUCT USED FOR UNKNOWN INDICATION
     Dosage: UNK
     Route: 048
     Dates: start: 20120215, end: 20120302
  9. DIACORT [Concomitant]
     Dosage: Q.S./ DAY, AS NEEDED
     Route: 065
     Dates: start: 20120222, end: 20120301
  10. ZYLORIC [Concomitant]
     Dosage: 100 MG, QD
     Route: 048
     Dates: start: 20120224
  11. ULCERLMIN [Concomitant]
     Indication: PROPHYLAXIS
     Dosage: 3 G, QD
     Dates: start: 20120411

REACTIONS (2)
  - Haemoglobin decreased [Not Recovered/Not Resolved]
  - Pneumonia [Recovering/Resolving]
